FAERS Safety Report 24798665 (Version 1)
Quarter: 2025Q1

REPORT INFORMATION
  Report Type: Spontaneous
  Country: US (occurrence: US)
  Receive Date: 20250102
  Receipt Date: 20250102
  Transmission Date: 20250409
  Serious: Yes (Hospitalization, Other)
  Sender: ALKEM
  Company Number: None

PATIENT
  Age: 68 Year
  Sex: Male

DRUGS (4)
  1. TACROLIMUS [Interacting]
     Active Substance: TACROLIMUS
     Indication: Immunosuppressant drug therapy
     Route: 065
  2. TACROLIMUS [Interacting]
     Active Substance: TACROLIMUS
     Route: 065
  3. LETERMOVIR [Interacting]
     Active Substance: LETERMOVIR
     Indication: Immunosuppressant drug therapy
     Route: 065
  4. LETERMOVIR [Interacting]
     Active Substance: LETERMOVIR
     Indication: Cytomegalovirus viraemia
     Route: 065

REACTIONS (5)
  - Acute kidney injury [Recovered/Resolved]
  - Immunosuppressant drug level increased [Recovered/Resolved]
  - Drug interaction [Unknown]
  - Nephropathy toxic [Recovered/Resolved]
  - Cytomegalovirus viraemia [Unknown]
